FAERS Safety Report 10965334 (Version 3)
Quarter: 2016Q4

REPORT INFORMATION
  Report Type: Spontaneous
  Country: US (occurrence: US)
  Receive Date: 20150330
  Receipt Date: 20161026
  Transmission Date: 20170206
  Serious: Yes (Other)
  Sender: FDA-Public Use
  Company Number: US-PFIZER INC-2015110361

PATIENT
  Sex: Female

DRUGS (2)
  1. LYRICA [Suspect]
     Active Substance: PREGABALIN
     Indication: FIBROMYALGIA
     Dosage: 150 MG AT DAY AND 100 MG AT NIGHT
  2. LYRICA [Suspect]
     Active Substance: PREGABALIN
     Dosage: 150 MG AT DAY, 100 MG IN AFTERNOON AND 100 AT NIGHT

REACTIONS (14)
  - Feeling abnormal [Unknown]
  - Diabetes mellitus [Unknown]
  - Intentional product use issue [Unknown]
  - Fall [Unknown]
  - Weight increased [Unknown]
  - Skin sensitisation [Unknown]
  - Body temperature fluctuation [Unknown]
  - Hyperhidrosis [Not Recovered/Not Resolved]
  - Vision blurred [Unknown]
  - Influenza like illness [Not Recovered/Not Resolved]
  - Peripheral swelling [Unknown]
  - Abasia [Unknown]
  - Poor quality sleep [Unknown]
  - Burning sensation [Unknown]

NARRATIVE: CASE EVENT DATE: 20150615
